FAERS Safety Report 9114954 (Version 1)
Quarter: 2013Q1

REPORT INFORMATION
  Report Type: Spontaneous
  Country: CA (occurrence: CA)
  Receive Date: 20130225
  Receipt Date: 20130225
  Transmission Date: 20140127
  Serious: Yes (Death)
  Sender: FDA-Public Use
  Company Number: CA-ELI_LILLY_AND_COMPANY-CA201302005297

PATIENT
  Age: 44 Year
  Sex: Male

DRUGS (14)
  1. FORTEO [Suspect]
     Indication: OSTEOPOROSIS
     Dosage: 20 UG, QD
     Route: 058
     Dates: start: 20110929
  2. LOPERAMIDE [Concomitant]
     Dosage: UNK, UNKNOWN
     Route: 065
  3. PROGRAFT [Concomitant]
     Dosage: UNK, UNKNOWN
     Route: 065
  4. COVERSYL [Concomitant]
     Dosage: UNK, UNKNOWN
     Route: 065
  5. HUMALOG [Concomitant]
     Dosage: UNK, UNKNOWN
     Route: 065
  6. LANTUS [Concomitant]
  7. ELAVIL [Concomitant]
     Dosage: UNK, UNKNOWN
     Route: 065
  8. EFFEXOR [Concomitant]
     Dosage: UNK, UNKNOWN
  9. RITALIN [Concomitant]
     Dosage: UNK, UNKNOWN
     Route: 065
  10. CALCIUM [Concomitant]
     Dosage: UNK, UNKNOWN
     Route: 065
  11. D-TABS [Concomitant]
     Dosage: UNK, UNKNOWN
     Route: 065
  12. PREDNISONE [Concomitant]
     Dosage: UNK, UNKNOWN
     Route: 065
  13. ENTOCORT [Concomitant]
     Dosage: UNK, UNKNOWN
     Route: 065
  14. COTAZYM [Concomitant]
     Dosage: UNK, UNKNOWN
     Route: 065

REACTIONS (1)
  - Death [Fatal]
